FAERS Safety Report 16228453 (Version 1)
Quarter: 2019Q2

REPORT INFORMATION
  Report Type: Spontaneous
  Country: US (occurrence: US)
  Receive Date: 20190318
  Receipt Date: 20190318
  Transmission Date: 20190711
  Serious: No
  Sender: FDA-Public Use
  Company Number: None

PATIENT
  Age: 65 Year
  Sex: Female

DRUGS (4)
  1. CAPECITABINE 500 MG TAB [Suspect]
     Active Substance: CAPECITABINE
     Route: 048
     Dates: start: 20181016
  2. CAPECITABINE 500 MG TAB [Suspect]
     Active Substance: CAPECITABINE
  3. CAPECITABINE 500 MG TAB [Suspect]
     Active Substance: CAPECITABINE
     Indication: BREAST CANCER
     Route: 048
  4. EXEMESTANE. [Concomitant]
     Active Substance: EXEMESTANE

REACTIONS (1)
  - Brain operation [None]

NARRATIVE: CASE EVENT DATE: 20190315
